FAERS Safety Report 7123076-X (Version None)
Quarter: 2010Q4

REPORT INFORMATION
  Report Type: 
  Country: None (occurrence: None)
  Receive Date: 20101125
  Receipt Date: 20101119
  Transmission Date: 20110411
  Serious: Yes (Hospitalization)
  Sender: FDA-Public Use
  Company Number: US-BIOGENIDEC-2010BI028865

PATIENT
  Age: 35 Year
  Sex: Female

DRUGS (1)
  1. AVONEX [Suspect]
     Indication: MULTIPLE SCLEROSIS
     Route: 030
     Dates: start: 20100310

REACTIONS (5)
  - ADVERSE DRUG REACTION [None]
  - HEMIPARESIS [None]
  - MUSCULAR WEAKNESS [None]
  - PNEUMONIA [None]
  - VISUAL ACUITY REDUCED [None]
